FAERS Safety Report 5314251-5 (Version None)
Quarter: 2007Q2

REPORT INFORMATION
  Report Type: 
  Country: None (occurrence: None)
  Receive Date: 20070425
  Receipt Date: 20070409
  Transmission Date: 20071010
  Serious: Yes (Death, Hospitalization)
  Sender: FDA-Public Use
  Company Number: 4394

PATIENT
  Age: 6 Year
  Sex: Female

DRUGS (2)
  1. AMNESTEEM [Suspect]
     Indication: BRAIN STEM GLIOMA
     Dosage: 20 MG, QD, PO
     Route: 048
     Dates: start: 20070221, end: 20070223
  2. AMNESTEEM [Suspect]
     Indication: BRAIN STEM GLIOMA
     Dosage: 80 MG, BID, PO
     Route: 048
     Dates: start: 20070221, end: 20070223

REACTIONS (6)
  - CONVULSION [None]
  - DEAFNESS UNILATERAL [None]
  - GENERAL PHYSICAL HEALTH DETERIORATION [None]
  - HEADACHE [None]
  - MALIGNANT NEOPLASM PROGRESSION [None]
  - TINNITUS [None]
